FAERS Safety Report 20029627 (Version 1)
Quarter: 2021Q4

REPORT INFORMATION
  Report Type: Spontaneous
  Country: US (occurrence: US)
  Receive Date: 20211103
  Receipt Date: 20211103
  Transmission Date: 20220303
  Serious: No
  Sender: FDA-Public Use
  Company Number: US-UPSHER-SMITH LABORATORIES, LLC-2021USL00340

PATIENT
  Age: 71 Year
  Sex: Male
  Weight: 113.38 kg

DRUGS (12)
  1. WARFARIN SODIUM [Suspect]
     Active Substance: WARFARIN SODIUM
     Indication: Atrial flutter
     Dosage: 7.5 MG
     Dates: start: 20201113, end: 2020
  2. WARFARIN SODIUM [Suspect]
     Active Substance: WARFARIN SODIUM
     Indication: Thrombosis prophylaxis
     Dosage: 5 MG
     Dates: start: 2020, end: 2020
  3. WARFARIN SODIUM [Suspect]
     Active Substance: WARFARIN SODIUM
     Dosage: LOWER DOSE
     Dates: start: 2020
  4. KORLYM [Suspect]
     Active Substance: MIFEPRISTONE
     Indication: Pituitary-dependent Cushing^s syndrome
     Dosage: 300 MG, 1X/DAY
     Route: 048
     Dates: start: 20180127, end: 20180314
  5. KORLYM [Suspect]
     Active Substance: MIFEPRISTONE
     Dosage: 600 MG, 1X/DAY
     Route: 048
     Dates: start: 20180315, end: 20180514
  6. KORLYM [Suspect]
     Active Substance: MIFEPRISTONE
     Dosage: 900 MG, 1X/DAY
     Route: 048
     Dates: start: 20180515
  7. ASPIRIN [Concomitant]
     Active Substance: ASPIRIN
  8. DILTIAZEM [Concomitant]
     Active Substance: DILTIAZEM
  9. VITAMINS [Concomitant]
     Active Substance: VITAMINS
  10. NIACIN [Concomitant]
     Active Substance: NIACIN
  11. TESTOSTERONE [Concomitant]
     Active Substance: TESTOSTERONE
  12. VITAMIN D [Concomitant]
     Active Substance: VITAMIN D NOS

REACTIONS (1)
  - International normalised ratio increased [Not Recovered/Not Resolved]

NARRATIVE: CASE EVENT DATE: 20201101
